FAERS Safety Report 22651810 (Version 1)
Quarter: 2023Q2

REPORT INFORMATION
  Report Type: Spontaneous
  Country: US (occurrence: US)
  Receive Date: 20230628
  Receipt Date: 20230628
  Transmission Date: 20230721
  Serious: No
  Sender: FDA-Public Use
  Company Number: US-CTI BIOPHARMA-2023US03622

PATIENT

DRUGS (10)
  1. VONJO [Suspect]
     Active Substance: PACRITINIB
     Indication: Myelofibrosis
     Dosage: 200 MG, BID
     Route: 048
     Dates: start: 20230426
  2. AMMONIUM LACTATE [Concomitant]
     Active Substance: AMMONIUM LACTATE
  3. VITAMIN D3 [Concomitant]
     Active Substance: CHOLECALCIFEROL
  4. LASIX [Concomitant]
     Active Substance: FUROSEMIDE
  5. HYDROXYUREA [Concomitant]
     Active Substance: HYDROXYUREA
  6. XYZAL [Concomitant]
     Active Substance: LEVOCETIRIZINE DIHYDROCHLORIDE
  7. SYNTHROID [Concomitant]
     Active Substance: LEVOTHYROXINE SODIUM
  8. ATIVAN [Concomitant]
     Active Substance: LORAZEPAM
  9. ZOLOFT [Concomitant]
     Active Substance: SERTRALINE HYDROCHLORIDE
  10. PROCRIT [Concomitant]
     Active Substance: ERYTHROPOIETIN

REACTIONS (12)
  - Emotional distress [Unknown]
  - Fatigue [Unknown]
  - Constipation [Unknown]
  - Toxicity to various agents [Unknown]
  - Product dose omission issue [Unknown]
  - Insomnia [Unknown]
  - Fluid retention [Unknown]
  - Discharge [Unknown]
  - Flatulence [Unknown]
  - Abdominal discomfort [Unknown]
  - Diarrhoea [Unknown]
  - Haemoglobin decreased [Unknown]
